FAERS Safety Report 8961971 (Version 1)
Quarter: 2012Q4

REPORT INFORMATION
  Report Type: 
  Country: PL (occurrence: PL)
  Receive Date: 20121213
  Receipt Date: 20121213
  Transmission Date: 20130627
  Serious: Yes (Hospitalization)
  Sender: FDA-Public Use
  Company Number: PL-PFIZER INC-2012313364

PATIENT
  Age: 19 Year
  Sex: Female
  Weight: 66.01 kg

DRUGS (6)
  1. IBUPROFEN [Suspect]
     Dosage: UNK
  2. DICLOFENAC [Suspect]
     Indication: PAIN
     Dosage: UNK
  3. PARACETAMOL [Suspect]
     Indication: PAIN
     Dosage: UNK
  4. PYRALGIN [Suspect]
     Indication: PAIN
     Dosage: UNK
  5. KETOPROFEN [Suspect]
     Indication: PAIN
     Dosage: UNK
  6. ANALGESICS [Concomitant]
     Indication: PRODUCT USED FOR UNKNOWN INDICATION
     Dosage: UNK

REACTIONS (4)
  - Necrotising fasciitis [Unknown]
  - Streptococcal infection [Unknown]
  - Septic shock [Unknown]
  - Anaemia [Unknown]
